FAERS Safety Report 25424913 (Version 4)
Quarter: 2025Q3

REPORT INFORMATION
  Report Type: Spontaneous
  Country: GB (occurrence: GB)
  Receive Date: 20250611
  Receipt Date: 20250721
  Transmission Date: 20251021
  Serious: Yes (Hospitalization)
  Sender: MYLAN
  Company Number: GB-MYLANLABS-2025M1047888

PATIENT
  Age: 32 Year
  Sex: Female
  Weight: 117.38 kg

DRUGS (23)
  1. CLOZARIL [Suspect]
     Active Substance: CLOZAPINE
     Indication: Borderline personality disorder
  2. CLOZARIL [Suspect]
     Active Substance: CLOZAPINE
  3. CLOZARIL [Suspect]
     Active Substance: CLOZAPINE
     Dosage: UNK, QD (UPTO MAX 300 MG DAILY FOR APPROXIMATELY 10 YEARS)
     Dates: end: 2019
  4. CLOZARIL [Suspect]
     Active Substance: CLOZAPINE
     Dosage: BID (25 MG MANE AND 100 MG NOCTE)
     Dates: start: 202007, end: 2022
  5. CLOZARIL [Suspect]
     Active Substance: CLOZAPINE
  6. PROCYCLIDINE [Concomitant]
     Active Substance: PROCYCLIDINE
     Dosage: 5 MILLIGRAM, BID (BD)
  7. SERTRALINE [Concomitant]
     Active Substance: SERTRALINE HYDROCHLORIDE
     Dosage: 200 MILLIGRAM, QD (OD)
  8. CLONAZEPAM [Concomitant]
     Active Substance: CLONAZEPAM
     Dosage: UNK, QD (VARIABLE DOSE UP TO 8 MG/DAY)
  9. ARIPIPRAZOLE [Concomitant]
     Active Substance: ARIPIPRAZOLE
  10. BISOPROLOL FUMARATE [Concomitant]
     Active Substance: BISOPROLOL FUMARATE
  11. FERROUS FUMARATE [Concomitant]
     Active Substance: FERROUS FUMARATE
     Dosage: 210 MILLIGRAM, QD (OD)
  12. CHOLECALCIFEROL [Concomitant]
     Active Substance: CHOLECALCIFEROL
  13. CHOLECALCIFEROL [Concomitant]
     Active Substance: CHOLECALCIFEROL
     Dosage: 800 MILLIGRAM, QD (OD)
  14. PROMETHAZINE HYDROCHLORIDE [Concomitant]
     Active Substance: PROMETHAZINE HYDROCHLORIDE
  15. SENNA [Concomitant]
     Active Substance: SENNOSIDES
     Dosage: 7.5 MILLIGRAM, PM (AS REQUIRED AT NIGHT)
  16. OXYCODONE [Concomitant]
     Active Substance: OXYCODONE
     Dosage: UNK, QID (1-2 MG AS REQUIRED 4 TIMES A DAY)
  17. LORAZEPAM [Concomitant]
     Active Substance: LORAZEPAM
  18. CETIRIZINE [Concomitant]
     Active Substance: CETIRIZINE HYDROCHLORIDE
  19. LANSOPRAZOLE [Concomitant]
     Active Substance: LANSOPRAZOLE
     Dosage: 30 MILLIGRAM, QD (OD)
  20. PREGABALIN [Concomitant]
     Active Substance: PREGABALIN
     Dosage: 200 MILLIGRAM, TID (600 MG/DAY)
  21. LAMOTRIGINE [Concomitant]
     Active Substance: LAMOTRIGINE
     Dosage: 75 MILLIGRAM, BID (BD)
  22. AMOXICILLIN\CLAVULANATE POTASSIUM [Concomitant]
     Active Substance: AMOXICILLIN\CLAVULANATE POTASSIUM
     Dosage: UNK, TID (500/125 MG TDS (SHORT COURSE))
  23. BISOPROLOL [Concomitant]
     Active Substance: BISOPROLOL
     Dosage: 1.25 MILLIGRAM, QD (OD)

REACTIONS (6)
  - Seizure [Unknown]
  - Eosinophil count decreased [Unknown]
  - Weight increased [Unknown]
  - Constipation [Unknown]
  - Enuresis [Recovering/Resolving]
  - Off label use [Unknown]

NARRATIVE: CASE EVENT DATE: 20200701
